FAERS Safety Report 18561246 (Version 2)
Quarter: 2021Q3

REPORT INFORMATION
  Report Type: Report from Study
  Country: US (occurrence: US)
  Receive Date: 20201130
  Receipt Date: 20210917
  Transmission Date: 20211014
  Serious: Yes (Hospitalization)
  Sender: FDA-Public Use
  Company Number: US-TAKEDA-2020TUS053787

PATIENT
  Age: 53 Year
  Sex: Female

DRUGS (3)
  1. TAKHZYRO [Suspect]
     Active Substance: LANADELUMAB-FLYO
     Indication: HEREDITARY ANGIOEDEMA
     Dosage: 300 MILLIGRAM, Q2WEEKS
     Route: 058
     Dates: start: 20190814
  2. ICATIBANT [Suspect]
     Active Substance: ICATIBANT ACETATE
     Indication: PRODUCT USED FOR UNKNOWN INDICATION
     Dosage: 300 MILLIGRAM, PRN
     Route: 058
     Dates: start: 20190817
  3. ICATIBANT [Suspect]
     Active Substance: ICATIBANT ACETATE
     Indication: PRODUCT USED FOR UNKNOWN INDICATION
     Dosage: 300 MILLIGRAM, PRN
     Route: 058
     Dates: start: 20190817

REACTIONS (4)
  - Crying [Unknown]
  - Product dose omission issue [Unknown]
  - Insurance issue [Unknown]
  - Oesophageal spasm [Recovered/Resolved]

NARRATIVE: CASE EVENT DATE: 20201026
